FAERS Safety Report 4596037-2 (Version None)
Quarter: 2005Q1

REPORT INFORMATION
  Report Type: 
  Country: None (occurrence: None)
  Receive Date: 20050224
  Receipt Date: 20041220
  Transmission Date: 20050727
  Serious: Yes (Death, Hospitalization)
  Sender: FDA-Public Use
  Company Number: 04P-062-0284125-00

PATIENT
  Age: 69 Year
  Sex: Female
  Weight: 110 kg

DRUGS (3)
  1. ISOPTIN [Suspect]
     Indication: TACHYARRHYTHMIA
     Dosage: 120 MG, 2 IN 1 D, PER ORAL
     Route: 048
     Dates: start: 20041101, end: 20041201
  2. METOPROLOL [Suspect]
     Indication: TACHYARRHYTHMIA
     Dosage: 100 MG, 2 IN 1 D, PER ORAL
     Route: 048
     Dates: start: 20041101, end: 20041201
  3. PHENOPROCOUMON [Concomitant]

REACTIONS (7)
  - ACIDOSIS [None]
  - GENERAL PHYSICAL HEALTH DETERIORATION [None]
  - HEPATIC FAILURE [None]
  - HYPERVENTILATION [None]
  - MULTI-ORGAN FAILURE [None]
  - RENAL FAILURE ACUTE [None]
  - SHOCK [None]
